FAERS Safety Report 10471863 (Version 2)
Quarter: 2014Q4

REPORT INFORMATION
  Report Type: Spontaneous
  Country: GB (occurrence: GB)
  Receive Date: 20140924
  Receipt Date: 20141203
  Transmission Date: 20150528
  Serious: Yes (Death, Hospitalization, Other)
  Sender: FDA-Public Use
  Company Number: GB-ROCHE-1463708

PATIENT
  Age: 76 Year
  Sex: Female
  Weight: 57 kg

DRUGS (4)
  1. LANSOPRAZOLE. [Concomitant]
     Active Substance: LANSOPRAZOLE
     Indication: PRODUCT USED FOR UNKNOWN INDICATION
     Route: 065
  2. HERCEPTIN [Concomitant]
     Active Substance: TRASTUZUMAB
     Indication: PRODUCT USED FOR UNKNOWN INDICATION
     Dosage: 347 MG EVERY 3 WEEKS
     Route: 042
  3. CLOZARIL [Suspect]
     Active Substance: CLOZAPINE
     Indication: PRODUCT USED FOR UNKNOWN INDICATION
     Dosage: 225 MG AT NIGHT
     Route: 048
  4. CAPECITABINE. [Suspect]
     Active Substance: CAPECITABINE
     Indication: HER-2 POSITIVE BREAST CANCER
     Route: 048

REACTIONS (17)
  - Breast cancer stage IV [Unknown]
  - Death [Fatal]
  - Chromaturia [Unknown]
  - Metastases to liver [Unknown]
  - Metastases to chest wall [Unknown]
  - Acute kidney injury [Unknown]
  - Diarrhoea [Recovered/Resolved]
  - Metastases to spine [Unknown]
  - Fluid retention [Unknown]
  - Malaise [Unknown]
  - Metastases to bone [Unknown]
  - Jaundice [Unknown]
  - HER-2 positive breast cancer [Unknown]
  - Hypophagia [Unknown]
  - White blood cell count decreased [Unknown]
  - Weight decreased [Unknown]
  - Asthenia [Unknown]

NARRATIVE: CASE EVENT DATE: 2011
